FAERS Safety Report 7759868-3 (Version None)
Quarter: 2011Q3

REPORT INFORMATION
  Report Type: 
  Country: None (occurrence: None)
  Receive Date: 20110919
  Receipt Date: 20110907
  Transmission Date: 20111222
  Serious: Yes (Other)
  Sender: FDA-Public Use
  Company Number: US-UCBSA-8041941

PATIENT
  Sex: Male
  Weight: 1.81 kg

DRUGS (3)
  1. PRENATAL VITAMINS [Concomitant]
     Indication: PREGNANCY
     Dosage: DOSE FREQ.: DAILY
     Route: 064
     Dates: start: 20080205, end: 20080810
  2. NIFEDIPINE [Concomitant]
     Indication: PROPHYLAXIS
     Route: 064
     Dates: start: 20080716, end: 20080810
  3. KEPPRA [Suspect]
     Indication: CONVULSION
     Dosage: DOSE FREQ.: DAILY
     Route: 064
     Dates: end: 20080810

REACTIONS (8)
  - GROSS MOTOR DELAY [None]
  - MATERNAL EXPOSURE DURING PREGNANCY [None]
  - HYPERTONIA [None]
  - CEREBRAL PALSY [None]
  - SPEECH DISORDER DEVELOPMENTAL [None]
  - PERIVENTRICULAR LEUKOMALACIA [None]
  - PREMATURE BABY [None]
  - JOINT STIFFNESS [None]
